FAERS Safety Report 8344840-5 (Version None)
Quarter: 2012Q2

REPORT INFORMATION
  Report Type: 
  Country: None (occurrence: None)
  Receive Date: 20120508
  Receipt Date: 20120430
  Transmission Date: 20120825
  Serious: Yes (Other)
  Sender: FDA-Public Use
  Company Number: US-GLAXOSMITHKLINE-A0970351A

PATIENT
  Age: 39 Year
  Sex: Female

DRUGS (2)
  1. NO CONCURRENT MEDICATION [Concomitant]
  2. VENTOLIN [Suspect]
     Indication: ASTHMA
     Dosage: 1PUFF THREE TIMES PER DAY
     Route: 055
     Dates: start: 20100101

REACTIONS (8)
  - DRUG ADMINISTRATION ERROR [None]
  - DYSPNOEA [None]
  - ASTHMA [None]
  - ANXIETY [None]
  - INCORRECT DOSE ADMINISTERED BY DEVICE [None]
  - DIZZINESS [None]
  - EMOTIONAL DISTRESS [None]
  - PRODUCT QUALITY ISSUE [None]
